FAERS Safety Report 14907941 (Version 1)
Quarter: 2018Q2

REPORT INFORMATION
  Report Type: Spontaneous
  Country: US (occurrence: US)
  Receive Date: 20180517
  Receipt Date: 20180517
  Transmission Date: 20180711
  Serious: Yes (Other)
  Sender: FDA-Public Use
  Company Number: US-009507513-1805USA005439

PATIENT
  Age: 67 Year
  Sex: Male

DRUGS (4)
  1. IPILIMUMAB [Suspect]
     Active Substance: IPILIMUMAB
     Indication: MELANOMA RECURRENT
  2. KEYTRUDA [Suspect]
     Active Substance: PEMBROLIZUMAB
     Indication: MELANOMA RECURRENT
  3. NIVOLUMAB [Suspect]
     Active Substance: NIVOLUMAB
     Indication: MELANOMA RECURRENT
  4. LEVOTHYROXINE SODIUM. [Concomitant]
     Active Substance: LEVOTHYROXINE SODIUM

REACTIONS (2)
  - Autoimmune thyroiditis [Unknown]
  - Primary hypothyroidism [Unknown]
